FAERS Safety Report 7722130-9 (Version None)
Quarter: 2011Q3

REPORT INFORMATION
  Report Type: 
  Country: None (occurrence: None)
  Receive Date: 20110831
  Receipt Date: 20110825
  Transmission Date: 20111222
  Serious: Yes (Hospitalization, Disabling, Other)
  Sender: FDA-Public Use
  Company Number: US-PFIZER INC-2010069867

PATIENT
  Sex: Female
  Weight: 68.027 kg

DRUGS (17)
  1. LYRICA [Suspect]
     Dosage: 300 MG, DAILY
  2. LEXAPRO [Concomitant]
     Dosage: 20 MG, UNK
  3. AMBIEN [Concomitant]
     Indication: SLEEP DISORDER
     Dosage: 10 MG, 1X/DAY
     Route: 048
  4. IRON [Concomitant]
  5. SOMA [Concomitant]
     Indication: MUSCLE SPASMS
     Dosage: 350 MG, 3X/DAY
     Route: 048
  6. PERCOCET [Concomitant]
     Dosage: 10/325
  7. LYRICA [Suspect]
     Indication: FIBROMYALGIA
     Dosage: 75 MG, 1X/DAY
     Route: 048
     Dates: start: 20090101, end: 20101001
  8. EFFEXOR XR [Concomitant]
     Indication: AFFECTIVE DISORDER
     Dosage: 75 MG, 1X/DAY
  9. METHADONE [Concomitant]
     Indication: BONE PAIN
     Dosage: 40 MG, 3X/DAY
  10. LYRICA [Suspect]
     Dosage: 200 MG, DAILY
  11. LYRICA [Suspect]
     Dosage: 600 MG, DAILY
  12. ATIVAN [Concomitant]
     Indication: NERVOUS SYSTEM DISORDER
     Dosage: 1 MG, 2X/DAY
     Route: 048
  13. OS-CAL [Concomitant]
     Indication: HYPOVITAMINOSIS
     Dosage: 1000 MG, DAILY
  14. VITAMIN D [Concomitant]
     Dosage: UNK
  15. LYRICA [Suspect]
     Dosage: 75 MG, 3X/DAY
  16. NEURONTIN [Concomitant]
     Indication: AFFECTIVE DISORDER
     Dosage: UNK
  17. VITAMIN B NOS [Concomitant]
     Dosage: UNK

REACTIONS (15)
  - NAUSEA [None]
  - BEDRIDDEN [None]
  - WITHDRAWAL SYNDROME [None]
  - MEMORY IMPAIRMENT [None]
  - ACTIVITIES OF DAILY LIVING IMPAIRED [None]
  - SACROILIITIS [None]
  - SKIN REACTION [None]
  - LOSS OF CONSCIOUSNESS [None]
  - INSOMNIA [None]
  - NERVOUS SYSTEM DISORDER [None]
  - BODY HEIGHT DECREASED [None]
  - BLOOD PRESSURE INCREASED [None]
  - FIBROMYALGIA [None]
  - RASH MACULAR [None]
  - DECREASED APPETITE [None]
